FAERS Safety Report 8785009 (Version 1)
Quarter: 2012Q4

REPORT INFORMATION
  Report Type: 
  Country: US (occurrence: US)
  Receive Date: 20120914
  Receipt Date: 20120914
  Transmission Date: 20130627
  Serious: Yes (Death, Hospitalization)
  Sender: FDA-Public Use
  Company Number: US-JNJFOC-20120904552

PATIENT
  Sex: Male

DRUGS (2)
  1. ITRACONAZOLE [Suspect]
     Indication: HISTOPLASMOSIS DISSEMINATED
     Dosage: for 2 days
     Route: 065
  2. ITRACONAZOLE [Suspect]
     Indication: HISTOPLASMOSIS DISSEMINATED
     Route: 065

REACTIONS (2)
  - Cardiac arrest [Fatal]
  - Cardiac failure congestive [Unknown]
